FAERS Safety Report 21975047 (Version 1)
Quarter: 2023Q1

REPORT INFORMATION
  Report Type: Spontaneous
  Country: JP (occurrence: JP)
  Receive Date: 20230209
  Receipt Date: 20230209
  Transmission Date: 20230418
  Serious: Yes (Hospitalization)
  Sender: FDA-Public Use
  Company Number: JP-BAXTER-2022BAX031666

PATIENT
  Age: 77 Year
  Sex: Male

DRUGS (1)
  1. REGUNEAL LCA [Suspect]
     Active Substance: CALCIUM CHLORIDE\DEXTROSE MONOHYDRATE\HYDROCHLORIC ACID\MAGNESIUM CHLORIDE\SODIUM BICARBONATE\SODIUM
     Indication: End stage renal disease
     Dosage: 5000 ML (DOSING INTERVAL NOT REPORTED)
     Route: 033
     Dates: start: 20150101

REACTIONS (3)
  - COVID-19 [Recovered/Resolved]
  - Physical deconditioning [Unknown]
  - Vomiting [Unknown]

NARRATIVE: CASE EVENT DATE: 20221226
